FAERS Safety Report 12208011 (Version 1)
Quarter: 2016Q1

REPORT INFORMATION
  Report Type: Spontaneous
  Country: FR (occurrence: FR)
  Receive Date: 20160324
  Receipt Date: 20160324
  Transmission Date: 20160526
  Serious: Yes (Hospitalization, Other)
  Sender: FDA-Public Use
  Company Number: FR-BRISTOL-MYERS SQUIBB COMPANY-BMS-2016-020987

PATIENT
  Sex: Male

DRUGS (1)
  1. OPDIVO [Suspect]
     Active Substance: NIVOLUMAB
     Indication: LUNG NEOPLASM MALIGNANT
     Dosage: 3 MG/KG, Q2WK
     Route: 065
     Dates: start: 20160302

REACTIONS (8)
  - Malignant neoplasm progression [Unknown]
  - General physical condition abnormal [Unknown]
  - Tachypnoea [Unknown]
  - Blood urea increased [Unknown]
  - Dyspnoea [Unknown]
  - Anaemia [Unknown]
  - Cardiomyopathy [Unknown]
  - Pleural effusion [Unknown]
